FAERS Safety Report 4982013-4 (Version None)
Quarter: 2006Q2

REPORT INFORMATION
  Report Type: 
  Country: None (occurrence: None)
  Receive Date: 20060425
  Receipt Date: 20060110
  Transmission Date: 20061013
  Serious: Yes (Hospitalization)
  Sender: FDA-Public Use
  Company Number: 2006SE00188

PATIENT
  Age: 19124 Day
  Sex: Female
  Weight: 63 kg

DRUGS (22)
  1. TCV-116 [Suspect]
     Indication: DIABETIC NEPHROPATHY
     Route: 048
     Dates: start: 20040316, end: 20040412
  2. TCV-116 [Suspect]
     Route: 048
     Dates: start: 20040413, end: 20060103
  3. GLIMICRON [Concomitant]
     Indication: DIABETES MELLITUS NON-INSULIN-DEPENDENT
     Route: 048
     Dates: end: 20050207
  4. GLIMICRON [Concomitant]
     Route: 048
     Dates: start: 20050208, end: 20060105
  5. ZYLORIC [Concomitant]
     Indication: HYPERURICAEMIA
     Route: 048
     Dates: start: 20020715, end: 20060105
  6. VANCOMIN [Concomitant]
     Indication: NEUROPATHY PERIPHERAL
     Route: 048
     Dates: start: 20020715, end: 20060105
  7. COMELIAN [Concomitant]
     Indication: PROTEIN URINE PRESENT
     Route: 048
     Dates: start: 20020416, end: 20060105
  8. LIPITOR [Concomitant]
     Indication: HYPERLIPIDAEMIA
     Route: 048
     Dates: start: 20020416, end: 20060104
  9. RIZABEN [Concomitant]
     Indication: CONJUNCTIVITIS ALLERGIC
     Route: 047
  10. ALMARL [Concomitant]
     Indication: HYPERTENSION
     Route: 048
     Dates: start: 20040127
  11. AMLODIN [Concomitant]
     Indication: HYPERTENSION
     Route: 048
     Dates: end: 20041121
  12. AMLODIN [Concomitant]
     Route: 048
     Dates: start: 20041122, end: 20060105
  13. AMARYL [Concomitant]
     Indication: DIABETES MELLITUS NON-INSULIN-DEPENDENT
     Route: 048
     Dates: start: 20040127
  14. LASIX [Concomitant]
     Indication: OEDEMA
     Route: 048
     Dates: end: 20041221
  15. LASIX [Concomitant]
     Route: 048
     Dates: start: 20041222, end: 20060105
  16. TORSEMIDE [Concomitant]
     Indication: OEDEMA
     Route: 048
     Dates: start: 20050830, end: 20060105
  17. PURSENNID [Concomitant]
     Indication: CONSTIPATION
     Route: 048
     Dates: start: 20051025
  18. MAGNESIUM OXIDE HEAVY [Concomitant]
     Indication: CONSTIPATION
     Route: 048
     Dates: start: 20050829
  19. UREPEARL [Concomitant]
     Indication: DRY SKIN
     Route: 062
     Dates: start: 20050412
  20. ISODINE [Concomitant]
     Indication: STOMATITIS
     Route: 049
     Dates: start: 20051220, end: 20051227
  21. APHTASOLON [Concomitant]
     Indication: STOMATITIS
     Route: 049
     Dates: start: 20051220, end: 20051227
  22. DIART [Concomitant]
     Indication: OEDEMA
     Route: 048
     Dates: start: 20050315, end: 20050829

REACTIONS (14)
  - ANAEMIA [None]
  - BLOOD IMMUNOGLOBULIN G INCREASED [None]
  - BLOOD PRESSURE DECREASED [None]
  - BONE MARROW FAILURE [None]
  - CARDIAC FAILURE [None]
  - FALL [None]
  - FEMORAL NECK FRACTURE [None]
  - GENERALISED OEDEMA [None]
  - GOITRE [None]
  - PANCYTOPENIA [None]
  - PLEURAL EFFUSION [None]
  - PNEUMONIA [None]
  - THYROID ADENOMA [None]
  - URINE OUTPUT DECREASED [None]
